FAERS Safety Report 14908847 (Version 2)
Quarter: 2018Q2

REPORT INFORMATION
  Report Type: Spontaneous
  Country: IT (occurrence: IT)
  Receive Date: 20180517
  Receipt Date: 20180522
  Transmission Date: 20180711
  Serious: Yes (Death, Hospitalization, Other)
  Sender: FDA-Public Use
  Company Number: IT-SA-2018SA136060

PATIENT
  Age: 51 Year
  Sex: Male

DRUGS (1)
  1. MYOZYME [Suspect]
     Active Substance: ALGLUCOSIDASE ALFA
     Dosage: UNK UNK,UNK
     Route: 041
     Dates: start: 201701

REACTIONS (5)
  - Respiratory disorder [Unknown]
  - Cerebral haemorrhage [Unknown]
  - Death [Fatal]
  - Epilepsy [Unknown]
  - Renal disorder [Unknown]
